FAERS Safety Report 18499928 (Version 2)
Quarter: 2021Q1

REPORT INFORMATION
  Report Type: Spontaneous
  Country: FR (occurrence: FR)
  Receive Date: 20201112
  Receipt Date: 20210324
  Transmission Date: 20210419
  Serious: Yes (Death, Other)
  Sender: FDA-Public Use
  Company Number: FR-BRISTOL-MYERS SQUIBB COMPANY-BMS-2020-093607

PATIENT
  Age: 90 Year
  Sex: Male
  Weight: 59 kg

DRUGS (7)
  1. BISOCE [Concomitant]
     Active Substance: BISOPROLOL
     Indication: CARDIAC AMYLOIDOSIS
     Dosage: 1.25 MG DAILY
     Route: 048
     Dates: start: 20200917
  2. NOVONORM [Concomitant]
     Active Substance: REPAGLINIDE
     Indication: INSULIN-REQUIRING TYPE 2 DIABETES MELLITUS
     Dosage: 1.5 MILLIGRAM, DAILY
     Route: 048
     Dates: end: 20201001
  3. RAMIPRIL. [Concomitant]
     Active Substance: RAMIPRIL
     Indication: HYPERTENSION
     Dosage: 2.5 MILLIGRAM, DAILY
     Route: 048
  4. PARACETAMOL [Concomitant]
     Active Substance: ACETAMINOPHEN
     Indication: PRODUCT USED FOR UNKNOWN INDICATION
     Dosage: UNK
     Route: 048
  5. FUROSEMIDE. [Concomitant]
     Active Substance: FUROSEMIDE
     Indication: HYPERTENSION
     Dosage: 80 MILLIGRAM, DAILY
     Route: 048
  6. ABASAGLAR [Concomitant]
     Active Substance: INSULIN GLARGINE
     Indication: INSULIN-REQUIRING TYPE 2 DIABETES MELLITUS
     Dosage: 10 INTERNATIONAL UNITS, DAILY
     Route: 058
  7. ELIQUIS [Suspect]
     Active Substance: APIXABAN
     Indication: CARDIAC AMYLOIDOSIS
     Dosage: 5 MG DAILY
     Route: 048
     Dates: start: 20200917, end: 20201001

REACTIONS (4)
  - Intentional product use issue [Unknown]
  - Hyperbilirubinaemia [Recovering/Resolving]
  - Hepatitis [Recovering/Resolving]
  - Respiratory distress [Fatal]

NARRATIVE: CASE EVENT DATE: 20200917
